FAERS Safety Report 7131580-3 (Version None)
Quarter: 2010Q4

REPORT INFORMATION
  Report Type: 
  Country: None (occurrence: None)
  Receive Date: 20101201
  Receipt Date: 20101123
  Transmission Date: 20110411
  Serious: Yes (Hospitalization)
  Sender: FDA-Public Use
  Company Number: NL-B.I. PHARMACEUTICALS,INC./RIDGEFIELD-2010-NL-00544NL

PATIENT
  Sex: Female

DRUGS (4)
  1. SIFROL 0.088MG [Suspect]
     Indication: RESTLESS LEGS SYNDROME
     Dosage: 0.176 MG
     Dates: start: 20100604, end: 20100622
  2. QUETIAPINE [Concomitant]
     Dosage: 300 MG
  3. LITHIUMCARBONAAT [Concomitant]
  4. EUTHYROX [Concomitant]
     Dosage: 0.5 MCG

REACTIONS (2)
  - DELUSION [None]
  - HALLUCINATION [None]
